FAERS Safety Report 17440304 (Version 1)
Quarter: 2020Q1

REPORT INFORMATION
  Report Type: Spontaneous
  Country: US (occurrence: US)
  Receive Date: 20200205
  Receipt Date: 20200205
  Transmission Date: 20200409
  Serious: No
  Sender: FDA-Public Use
  Company Number: None

PATIENT
  Age: 64 Year
  Sex: Male

DRUGS (16)
  1. TRAZODONE [Concomitant]
     Active Substance: TRAZODONE HYDROCHLORIDE
  2. BETAMETH DIP [Concomitant]
  3. PROPRANOLOL [Concomitant]
     Active Substance: PROPRANOLOL HYDROCHLORIDE
  4. QUETIAPINE. [Concomitant]
     Active Substance: QUETIAPINE
  5. METHYPRED [Concomitant]
  6. DILTIAZEM. [Concomitant]
     Active Substance: DILTIAZEM
  7. AZITHROMYCIN ANHYDROUS. [Concomitant]
     Active Substance: AZITHROMYCIN ANHYDROUS
  8. WAL-ITIN [Concomitant]
     Active Substance: LORATADINE
  9. VITAMIN D3 [Concomitant]
     Active Substance: CHOLECALCIFEROL
  10. COSENTYX [Suspect]
     Active Substance: SECUKINUMAB
     Indication: PSORIASIS
     Route: 058
     Dates: start: 20190218
  11. HUMIRA [Concomitant]
     Active Substance: ADALIMUMAB
  12. GABAPENTIN. [Concomitant]
     Active Substance: GABAPENTIN
  13. ELIQUIS [Concomitant]
     Active Substance: APIXABAN
  14. CYCLOBENZAPR [Concomitant]
     Active Substance: CYCLOBENZAPRINE
  15. NAPROXEN. [Concomitant]
     Active Substance: NAPROXEN
  16. BENZONATATE. [Concomitant]
     Active Substance: BENZONATATE

REACTIONS (2)
  - Hospitalisation [None]
  - Therapy cessation [None]

NARRATIVE: CASE EVENT DATE: 20191221
